FAERS Safety Report 18335144 (Version 1)
Quarter: 2020Q4

REPORT INFORMATION
  Report Type: Spontaneous
  Country: US (occurrence: US)
  Receive Date: 20201001
  Receipt Date: 20201001
  Transmission Date: 20210113
  Serious: Yes (Life-Threatening)
  Sender: FDA-Public Use
  Company Number: US-SA-2020SA266291

PATIENT

DRUGS (1)
  1. CABLIVI [Suspect]
     Active Substance: CAPLACIZUMAB-YHDP
     Dosage: UNK
     Route: 065
     Dates: start: 20200921, end: 20200924

REACTIONS (5)
  - Multimorbidity [Unknown]
  - General physical health deterioration [Unknown]
  - Off label use [Unknown]
  - Unevaluable event [Unknown]
  - Haematoma [Unknown]
